FAERS Safety Report 13657299 (Version 1)
Quarter: 2017Q2

REPORT INFORMATION
  Report Type: Spontaneous
  Country: US (occurrence: US)
  Receive Date: 20170615
  Receipt Date: 20170615
  Transmission Date: 20170830
  Serious: Yes (Hospitalization, Disabling, Other)
  Sender: FDA-Public Use
  Company Number: US-TEVA-776662USA

PATIENT
  Sex: Female

DRUGS (2)
  1. SEASONIQUE [Suspect]
     Active Substance: ETHINYL ESTRADIOL\LEVONORGESTREL
     Route: 065
     Dates: start: 2009
  2. SEASONALE [Suspect]
     Active Substance: ETHINYL ESTRADIOL\LEVONORGESTREL
     Route: 065
     Dates: start: 2003

REACTIONS (5)
  - Hepatic adenoma [Unknown]
  - Tumour haemorrhage [Unknown]
  - Abdominal pain [Unknown]
  - Tumour rupture [Unknown]
  - Scar [Unknown]

NARRATIVE: CASE EVENT DATE: 20130601
